FAERS Safety Report 18480895 (Version 1)
Quarter: 2020Q4

REPORT INFORMATION
  Report Type: Spontaneous
  Country: BG (occurrence: BG)
  Receive Date: 20201109
  Receipt Date: 20201109
  Transmission Date: 20210114
  Serious: Yes (Other)
  Sender: FDA-Public Use
  Company Number: BG-ASTRAZENECA-2020SF45697

PATIENT
  Sex: Female

DRUGS (1)
  1. LYNPARZA [Suspect]
     Active Substance: OLAPARIB
     Indication: OVARIAN CANCER
     Route: 048

REACTIONS (6)
  - Musculoskeletal stiffness [Recovering/Resolving]
  - Dry skin [Recovering/Resolving]
  - Nausea [Recovered/Resolved]
  - Haematotoxicity [Unknown]
  - Mucosal dryness [Recovering/Resolving]
  - Asthenia [Recovering/Resolving]
